FAERS Safety Report 7610270-4 (Version None)
Quarter: 2011Q3

REPORT INFORMATION
  Report Type: 
  Country: None (occurrence: None)
  Receive Date: 20110706
  Receipt Date: 20110621
  Transmission Date: 20111222
  Serious: Yes (Death, Hospitalization)
  Sender: FDA-Public Use
  Company Number: 1000019970

PATIENT
  Age: 73 Year
  Sex: Female
  Weight: 107 kg

DRUGS (27)
  1. ISOPTIN (VERAPAMIL HYDROCHLORIDE) (VERAPAMIL HYDROCHLORIDE) [Concomitant]
  2. SIMVASTATIN (SIMAVASTATIN) (SIMVASTATIN) [Concomitant]
  3. DICLON RAPID (DICLOFENAC SODIUM) (DICLOFENAC SODIUM) [Concomitant]
  4. ROFLUMILAST (ROFLUMILAST) (500 MICROGRAM, TABLETS) [Suspect]
     Dosage: 500 MCG (500 MCG,1 IN 1 D),ORAL
     Route: 048
     Dates: start: 20110125
  5. HAIPREX (METHENAMINE HIPPURATE) (METHENAMINE HIPPURATE) [Concomitant]
  6. GABAPENTIN (GABAPENTIN) (300 MILLIGRAM) (GABAPENTIN) [Concomitant]
  7. PRIMIDONE (PRIMIDONE) (PRIMIDONE) [Concomitant]
  8. FURIX (FUROSEMIDE) (FUROSEMIDE) [Concomitant]
  9. BERODUAL (IPRATROPIUM, FENOTEROL) (IPRATROPIUM, FENOTEROL) [Concomitant]
  10. PARACETAMOL (PARACETAMOL) (PARACETAMOL) [Concomitant]
  11. KALEORID (POTASSIUM CHLORIDE) (POTASSIUM CHLORIDE) [Concomitant]
  12. SYMBICORT (BUDESONIDE, FORMOTEROL FUMARATE) (BUDESONIDE, FORMOTEROL FU [Concomitant]
  13. DUSPATALIN (MEBEVERINE HYDROCHLORIDE) (MEBEVERINE HYDROCHLORIDE) [Concomitant]
  14. ROFLUMILAST (ROFLUMILAST) (500 MICROGRAM, TABLETS) [Suspect]
     Indication: CHRONIC OBSTRUCTIVE PULMONARY DISEASE
     Dosage: 500 MCG (500 MCG,1 IN 1 D),ORAL
     Route: 048
     Dates: start: 20110112, end: 20110112
  15. SERTRALINE HYDROCHLORIDE [Concomitant]
  16. CEFUROXIME (CEFUROXIME) (1500 MILLIGRAM) (CEFUROXIME) [Concomitant]
  17. HJERTEMAGNYL (HJERTEMAGNYL) (HJERTEMAGNYL) [Concomitant]
  18. SPIRON (SPIRONOLACTONE) (SPIRONOLACTONE) [Concomitant]
  19. BETOLVEX (CYANOCOBALAMIN-TANNIN COMPLEX) (CYANOCOBALAMIN-TANNIN COMPLE [Concomitant]
  20. MAGNESIA (MAGNESIUM) (MAGNESIUM) [Concomitant]
  21. SPIRIVA (TIOTROPIUM BROMIDE) (TIOTROPIUM BROMIDE) [Concomitant]
  22. PREDNISOLONE [Concomitant]
  23. MAREVAN (WARFARIN SODIUM) (WARFARIN SODIUM) [Concomitant]
  24. PINEX (SULFOGAIACOL) (SULFOGAIACOL) [Concomitant]
  25. UNIKALK PLUS (CALCIUM D3) (400 MILLIGRAM) (CALCIUM D3) [Concomitant]
  26. LOSATRIX (LOSARTAN) (LOSARTAN) [Concomitant]
  27. PROGYNON (ESTRADIOL VALERATE) (ESTRADIOL VALERATE) [Concomitant]

REACTIONS (16)
  - COMPLETED SUICIDE [None]
  - C-REACTIVE PROTEIN INCREASED [None]
  - CONFUSIONAL STATE [None]
  - WHITE BLOOD CELL COUNT INCREASED [None]
  - NEUTROPHIL COUNT INCREASED [None]
  - DYSPNOEA [None]
  - LOSS OF CONSCIOUSNESS [None]
  - ACTIVITIES OF DAILY LIVING IMPAIRED [None]
  - DELIRIUM [None]
  - URINARY TRACT INFECTION [None]
  - DRUG INTOLERANCE [None]
  - DEHYDRATION [None]
  - DECREASED APPETITE [None]
  - DEPRESSION [None]
  - FALL [None]
  - HYPOPHAGIA [None]
